FAERS Safety Report 7542047-2 (Version None)
Quarter: 2011Q2

REPORT INFORMATION
  Report Type: 
  Country: None (occurrence: None)
  Receive Date: 20110613
  Receipt Date: 20110602
  Transmission Date: 20111010
  Serious: Yes (Hospitalization)
  Sender: FDA-Public Use
  Company Number: US-JNJFOC-20110502074

PATIENT
  Sex: Male
  Weight: 81.4 kg

DRUGS (4)
  1. PREDNISONE [Suspect]
     Indication: PROSTATE CANCER METASTATIC
     Route: 065
  2. ABIRATERONE ACETATE [Suspect]
     Indication: PROSTATE CANCER METASTATIC
     Route: 048
  3. DOCETAXEL [Concomitant]
     Indication: CHEMOTHERAPY
     Route: 065
     Dates: start: 20110301
  4. ABIRATERONE ACETATE [Suspect]
     Route: 048
     Dates: start: 20110411, end: 20110516

REACTIONS (3)
  - DEHYDRATION [None]
  - PYREXIA [None]
  - PAIN [None]
